FAERS Safety Report 10564767 (Version 2)
Quarter: 2015Q2

REPORT INFORMATION
  Report Type: Report from Study
  Country: DE (occurrence: DE)
  Receive Date: 20141105
  Receipt Date: 20150605
  Transmission Date: 20150821
  Serious: Yes (Life-Threatening, Hospitalization)
  Sender: FDA-Public Use
  Company Number: DE-ROCHE-1483168

PATIENT
  Age: 47 Year
  Sex: Male
  Weight: 78.09 kg

DRUGS (5)
  1. CYTARABINE. [Suspect]
     Active Substance: CYTARABINE
     Indication: ACUTE MYELOID LEUKAEMIA
     Route: 065
     Dates: start: 20140814, end: 20140820
  2. TRETINOIN. [Suspect]
     Active Substance: TRETINOIN
     Route: 065
     Dates: start: 20140822, end: 20140828
  3. TRETINOIN. [Suspect]
     Active Substance: TRETINOIN
     Indication: ACUTE MYELOID LEUKAEMIA
     Route: 065
     Dates: start: 20140819, end: 20140821
  4. IDARUBICIN HCL [Suspect]
     Active Substance: IDARUBICIN HYDROCHLORIDE
     Indication: ACUTE MYELOID LEUKAEMIA
     Route: 065
     Dates: start: 20140814, end: 20140818
  5. ETOPOSIDE. [Suspect]
     Active Substance: ETOPOSIDE
     Indication: ACUTE MYELOID LEUKAEMIA
     Route: 065
     Dates: start: 20140814, end: 20140816

REACTIONS (2)
  - Infection [Recovered/Resolved]
  - Neutropenic colitis [Recovered/Resolved]

NARRATIVE: CASE EVENT DATE: 20140827
